FAERS Safety Report 9347338 (Version 2)
Quarter: 2013Q3

REPORT INFORMATION
  Report Type: Spontaneous
  Country: IT (occurrence: IT)
  Receive Date: 20130613
  Receipt Date: 20130722
  Transmission Date: 20140515
  Serious: Yes (Hospitalization)
  Sender: FDA-Public Use
  Company Number: IT-PFIZER INC-2013174991

PATIENT
  Age: 33 Year
  Sex: Male

DRUGS (2)
  1. AZITHROMYCIN [Suspect]
     Indication: PNEUMONIA
     Dosage: 500 MG, 1X/DAY
     Route: 048
     Dates: start: 20130525, end: 20130530
  2. AMOXICILLIN TRIHYDRATE/CLAVULANATE POTASSIUM [Suspect]
     Indication: PNEUMONIA
     Dosage: 3 G, DAILY
     Route: 048
     Dates: start: 20130528, end: 20130531

REACTIONS (4)
  - Arthritis [Recovering/Resolving]
  - Diarrhoea [Recovering/Resolving]
  - Vasculitis necrotising [Recovering/Resolving]
  - Vomiting [Recovering/Resolving]
